FAERS Safety Report 9187275 (Version 2)
Quarter: 2013Q2

REPORT INFORMATION
  Report Type: Spontaneous
  Country: MY (occurrence: MY)
  Receive Date: 20130325
  Receipt Date: 20130424
  Transmission Date: 20140414
  Serious: Yes (Hospitalization)
  Sender: FDA-Public Use
  Company Number: MY-PFIZER INC-2013092315

PATIENT
  Age: 5 Decade
  Sex: Male

DRUGS (1)
  1. ZITHROMAX [Suspect]
     Indication: PNEUMONIA
     Dosage: 2 G, UNK
     Dates: start: 201303

REACTIONS (2)
  - Cardiac failure congestive [Unknown]
  - Liver disorder [Recovering/Resolving]
